FAERS Safety Report 20786605 (Version 1)
Quarter: 2022Q2

REPORT INFORMATION
  Report Type: Spontaneous
  Country: US (occurrence: US)
  Receive Date: 20220505
  Receipt Date: 20220505
  Transmission Date: 20220720
  Serious: Yes (Hospitalization, Other)
  Sender: FDA-Public Use
  Company Number: US-ROCHE-2729082

PATIENT
  Age: 73 Year
  Sex: Female
  Weight: 66.283 kg

DRUGS (25)
  1. CLONAZEPAM [Suspect]
     Active Substance: CLONAZEPAM
     Indication: Insomnia
     Dosage: TAKE 1 TABLET BY MOUTH AT BED TIME AS NEEDED
     Route: 048
     Dates: start: 20201116
  2. CLONAZEPAM [Suspect]
     Active Substance: CLONAZEPAM
     Indication: Anxiety
     Dosage: TAKE 1 TABLET BY MOUTH AT BED TIME AS NEEDED
     Route: 048
     Dates: start: 20201116
  3. CLONAZEPAM [Suspect]
     Active Substance: CLONAZEPAM
     Indication: Insomnia
     Route: 065
  4. CLONAZEPAM [Suspect]
     Active Substance: CLONAZEPAM
     Indication: Anxiety
     Route: 065
  5. ACTEMRA [Suspect]
     Active Substance: TOCILIZUMAB
     Indication: Autoimmune disorder
     Route: 058
     Dates: start: 20190228
  6. ACTEMRA [Suspect]
     Active Substance: TOCILIZUMAB
     Indication: Rheumatoid arthritis
     Route: 058
     Dates: start: 20190228
  7. ACTEMRA [Suspect]
     Active Substance: TOCILIZUMAB
     Indication: Autoimmune disorder
     Dosage: INJECT 162 MG (0.9 ML) SUBCUTANEOUSLY EVERY 2 WEEKS
     Route: 058
  8. ACTEMRA [Suspect]
     Active Substance: TOCILIZUMAB
     Indication: Rheumatoid arthritis
     Dosage: INJECT 162 MG (0.9 ML) SUBCUTANEOUSLY EVERY 2 WEEKS
     Route: 058
  9. TYLENOL WITH CODEINE [Concomitant]
     Active Substance: ACETAMINOPHEN\CODEINE PHOSPHATE
     Dosage: 300-30 MG
     Route: 048
     Dates: start: 20210224
  10. ECOTRIN [Concomitant]
     Active Substance: ASPIRIN
     Route: 048
     Dates: start: 20201127
  11. CALCIUM\VITAMIN D [Concomitant]
     Active Substance: CALCIUM\VITAMIN D
     Route: 065
  12. COENZYME Q10 [Concomitant]
     Active Substance: DIETARY SUPPLEMENT\UBIDECARENONE
     Route: 065
  13. FLEXERIL [Concomitant]
     Active Substance: CYCLOBENZAPRINE HYDROCHLORIDE
     Route: 065
  14. FERROUS SULFATE [Concomitant]
     Active Substance: FERROUS SULFATE
     Route: 065
  15. IMDUR [Concomitant]
     Active Substance: ISOSORBIDE MONONITRATE
     Route: 065
  16. LOPRESSOR [Concomitant]
     Active Substance: METOPROLOL TARTRATE
     Route: 065
  17. OCUVITE EXTRA [Concomitant]
     Route: 065
  18. NITROSTAT [Concomitant]
     Active Substance: NITROGLYCERIN
     Route: 065
  19. PROTONIX [Concomitant]
     Active Substance: PANTOPRAZOLE SODIUM
     Route: 065
  20. KLOR-CON M20 [Concomitant]
     Active Substance: POTASSIUM CHLORIDE
     Route: 065
  21. PREDNISONE [Concomitant]
     Active Substance: PREDNISONE
     Route: 065
  22. RETINOL [Concomitant]
     Active Substance: RETINOL
     Route: 065
  23. VITAMIN C [Concomitant]
     Active Substance: ASCORBIC ACID
     Route: 065
  24. CHOLECALCIFEROL [Concomitant]
     Active Substance: CHOLECALCIFEROL
     Route: 065
  25. RETAINE PM [Concomitant]
     Active Substance: MINERAL OIL\PETROLATUM
     Route: 065

REACTIONS (7)
  - COVID-19 [Recovering/Resolving]
  - Pneumonia [Unknown]
  - Fall [Unknown]
  - Treatment noncompliance [Unknown]
  - Off label use [Unknown]
  - Skin ulcer [Recovered/Resolved]
  - Asthenia [Unknown]

NARRATIVE: CASE EVENT DATE: 20190501
